FAERS Safety Report 7807218-6 (Version None)
Quarter: 2011Q4

REPORT INFORMATION
  Report Type: 
  Country: None (occurrence: None)
  Receive Date: 20111011
  Receipt Date: 20111003
  Transmission Date: 20120403
  Serious: Yes (Hospitalization)
  Sender: FDA-Public Use
  Company Number: GB-PURDUE-GBR-2011-0008883

PATIENT
  Sex: Female

DRUGS (6)
  1. CARBAMAZEPINE [Concomitant]
     Dosage: 200 MG, DAILY
     Route: 048
  2. MORPHINE SULFATE [Suspect]
     Indication: PRODUCT USED FOR UNKNOWN INDICATION
     Dosage: 10 MG, Q4H
     Route: 048
  3. BISOPROLOL [Concomitant]
     Dosage: 2.5 MG, DAILY
     Route: 048
  4. MS CONTIN [Suspect]
     Indication: PRODUCT USED FOR UNKNOWN INDICATION
     Dosage: 70 MG, DAILY
     Route: 048
  5. ACETAMINOPHEN [Concomitant]
     Dosage: 1 G, QID
     Route: 048
  6. BENDROFLUMETHIAZIDE [Suspect]
     Indication: PRODUCT USED FOR UNKNOWN INDICATION
     Dosage: 2.5 MG, DAILY
     Route: 048

REACTIONS (3)
  - CONSTIPATION [None]
  - URINARY TRACT INFECTION [None]
  - URINARY RETENTION [None]
